FAERS Safety Report 8236481-5 (Version None)
Quarter: 2012Q1

REPORT INFORMATION
  Report Type: 
  Country: None (occurrence: None)
  Receive Date: 20120327
  Receipt Date: 20120322
  Transmission Date: 20120608
  Serious: Yes (Hospitalization)
  Sender: FDA-Public Use
  Company Number: US-BAYER-2012-028772

PATIENT
  Age: 25 Year
  Sex: Female

DRUGS (5)
  1. ZOLOFT [Concomitant]
     Dosage: 100 MG, QD
  2. RED YEAST RICE EXTRACT [Concomitant]
     Indication: LIPIDS ABNORMAL
  3. BITTER ORANGE TINCTURE [Concomitant]
  4. YASMIN [Suspect]
     Dosage: UNK
     Dates: start: 20091101, end: 20100101
  5. GUARANA [Concomitant]

REACTIONS (4)
  - PULMONARY EMBOLISM [None]
  - DYSPNOEA [None]
  - PYREXIA [None]
  - HEART RATE INCREASED [None]
